FAERS Safety Report 15794803 (Version 1)
Quarter: 2019Q1

REPORT INFORMATION
  Report Type: Spontaneous
  Country: US (occurrence: US)
  Receive Date: 20190107
  Receipt Date: 20190107
  Transmission Date: 20190417
  Serious: No
  Sender: FDA-Public Use
  Company Number: US-PFIZER INC-2018537026

PATIENT
  Age: 65 Year
  Sex: Female

DRUGS (1)
  1. QUINAPRIL. [Suspect]
     Active Substance: QUINAPRIL
     Indication: HYPERTENSION
     Dosage: UNK

REACTIONS (1)
  - Drug effect incomplete [Recovered/Resolved]
